FAERS Safety Report 20314780 (Version 1)
Quarter: 2022Q1

REPORT INFORMATION
  Report Type: Spontaneous
  Country: FR (occurrence: FR)
  Receive Date: 20220110
  Receipt Date: 20220110
  Transmission Date: 20220423
  Serious: Yes (Other)
  Sender: FDA-Public Use
  Company Number: FR-RENAUDINFR-2021000516

PATIENT
  Age: 47 Year
  Sex: Male

DRUGS (5)
  1. BREVIBLOC [Suspect]
     Active Substance: ESMOLOL HYDROCHLORIDE
     Indication: Ventricular fibrillation
     Dosage: PEAK INFUSION RATE = 213 MICROGRAMS/KG/MINUTE
     Route: 051
  2. NOREPINEPHRINE [Suspect]
     Active Substance: NOREPINEPHRINE
     Indication: Hypotension
     Dosage: PEAK INFUSION RATE = 3.88 MICROGRAMS/KG/MINUTE
     Route: 041
  3. Pure Anhydrous Caffeine Powder [Concomitant]
     Indication: Suicide attempt
     Route: 048
  4. amiodrarone [Concomitant]
     Indication: Product used for unknown indication
     Route: 065
  5. LIDOCAINE [Concomitant]
     Active Substance: LIDOCAINE
     Indication: Product used for unknown indication
     Route: 065

REACTIONS (2)
  - Rhabdomyolysis [Recovered/Resolved]
  - Acute kidney injury [Recovered/Resolved]
